FAERS Safety Report 9058609 (Version 1)
Quarter: 2013Q1

REPORT INFORMATION
  Report Type: Spontaneous
  Country: US (occurrence: US)
  Receive Date: 20130211
  Receipt Date: 20130211
  Transmission Date: 20140127
  Serious: Yes (Hospitalization)
  Sender: FDA-Public Use
  Company Number: PHHY2013US011460

PATIENT
  Age: 73 Year
  Sex: Male

DRUGS (5)
  1. ALLOPURINOL [Suspect]
     Indication: HYPERURICAEMIA
     Dosage: 300 MG, PER DAY
  2. ASPIRIN [Concomitant]
     Dosage: 75 MG, PER DAY
  3. ATENOLOL [Concomitant]
     Dosage: 50 MG, PER DAY
  4. SIMVASTATIN [Concomitant]
     Dosage: 40 MG, PER DAY
  5. BEZAFIBRATE [Concomitant]
     Dosage: 200 MG, TID

REACTIONS (23)
  - Drug reaction with eosinophilia and systemic symptoms [Recovered/Resolved]
  - Rash [Recovering/Resolving]
  - Pyrexia [Recovered/Resolved]
  - Chills [Unknown]
  - Periorbital oedema [Unknown]
  - Erythema [Recovered/Resolved]
  - Ocular hyperaemia [Recovered/Resolved]
  - Scab [Recovered/Resolved]
  - Rash macular [Recovered/Resolved]
  - Purpura [Recovered/Resolved]
  - Renal injury [Recovered/Resolved]
  - Renal impairment [Recovered/Resolved]
  - Liver injury [Recovered/Resolved]
  - Hepatitis [Recovered/Resolved]
  - Eosinophilia [Recovered/Resolved]
  - Mental status changes [Unknown]
  - Confusional state [Unknown]
  - Anxiety [Unknown]
  - Interstitial lung disease [Unknown]
  - Cough [Unknown]
  - Dyspnoea [Recovered/Resolved]
  - Crepitations [Unknown]
  - Wheezing [Unknown]
